FAERS Safety Report 23103667 (Version 1)
Quarter: 2023Q4

REPORT INFORMATION
  Report Type: Spontaneous
  Country: US (occurrence: US)
  Receive Date: 20231025
  Receipt Date: 20231025
  Transmission Date: 20240109
  Serious: No
  Sender: FDA-Public Use
  Company Number: US-ELI_LILLY_AND_COMPANY-US202310014264

PATIENT
  Sex: Male

DRUGS (2)
  1. HUMALOG [Suspect]
     Active Substance: INSULIN LISPRO
     Indication: Type 2 diabetes mellitus
     Dosage: UNK UNK, UNKNOWN
     Route: 065
     Dates: start: 2003
  2. TOUJEO [Concomitant]
     Active Substance: INSULIN GLARGINE
     Indication: Blood glucose abnormal
     Dosage: UNK
     Dates: start: 2018

REACTIONS (4)
  - Neuropathy peripheral [Unknown]
  - Blood glucose abnormal [Unknown]
  - Sciatica [Unknown]
  - Fall [Unknown]

NARRATIVE: CASE EVENT DATE: 20180101
